FAERS Safety Report 10004003 (Version 2)
Quarter: 2014Q1

REPORT INFORMATION
  Report Type: Spontaneous
  Country: US (occurrence: US)
  Receive Date: 20140312
  Receipt Date: 20140324
  Transmission Date: 20141002
  Serious: No
  Sender: FDA-Public Use
  Company Number: US-VERTEX PHARMACEUTICALS INC-2014-001226

PATIENT
  Age: 48 Year
  Sex: Male
  Weight: 100 kg

DRUGS (6)
  1. INCIVEK [Suspect]
     Indication: HEPATITIS C
     Dosage: 3 DF, BID
     Route: 048
     Dates: start: 20140130, end: 20140220
  2. INCIVEK [Suspect]
     Dosage: 3 DF, BID
     Route: 048
     Dates: start: 20140303
  3. RIBAVIRIN [Suspect]
     Indication: HEPATITIS C
     Dosage: 2 TABS IN AM, 3 TABS IN PM
     Route: 048
     Dates: start: 20140130, end: 20140220
  4. RIBAVIRIN [Suspect]
     Dosage: 2 TABS IN AM, 3 TABS IN PM
     Route: 048
     Dates: start: 20140303
  5. PEGASYS [Suspect]
     Indication: HEPATITIS C
     Dosage: 180 ?G, QW
     Route: 058
     Dates: start: 20140130, end: 20140220
  6. PEGASYS [Suspect]
     Dosage: 180 ?G, QW
     Route: 058
     Dates: start: 20140303, end: 20140307

REACTIONS (3)
  - Injection site rash [Not Recovered/Not Resolved]
  - White blood cell count decreased [Not Recovered/Not Resolved]
  - Rash erythematous [Not Recovered/Not Resolved]
